FAERS Safety Report 10009539 (Version 1)
Quarter: 2014Q1

REPORT INFORMATION
  Report Type: Spontaneous
  Country: US (occurrence: US)
  Receive Date: 20140312
  Receipt Date: 20140312
  Transmission Date: 20141002
  Serious: No
  Sender: FDA-Public Use
  Company Number: US-INCYTE CORPORATION-2012IN001790

PATIENT
  Sex: Female

DRUGS (11)
  1. JAKAFI [Suspect]
     Indication: MYELOFIBROSIS
     Dosage: 20 MG, BID
     Route: 048
     Dates: end: 2012
  2. JAKAFI [Suspect]
     Dosage: 15 MG, BID
     Route: 048
     Dates: start: 2012
  3. ALLOPURINOL [Concomitant]
     Dosage: 300 MG, QD
  4. MELOXICAM [Concomitant]
     Dosage: 15 MG, QD
  5. HYDROCODONE BITARTRATE AND ACETAMINOPHEN [Concomitant]
     Dosage: 7.5/750 MG
  6. METOPROLOL [Concomitant]
     Dosage: 50 MG, QD
  7. WARFARIN [Concomitant]
     Dosage: 5 MG, QD
  8. FOLIC ACID [Concomitant]
     Dosage: 2 MG, QD
  9. OMEPRAZOLE [Concomitant]
     Dosage: 20 MG, BID
  10. ASPIRIN [Concomitant]
     Dosage: 81 MG, QD
  11. OMEGA 3 [Concomitant]
     Dosage: 90 MG, QD

REACTIONS (2)
  - Oral pain [Not Recovered/Not Resolved]
  - Pyrexia [Recovered/Resolved]
